FAERS Safety Report 6868367-2 (Version None)
Quarter: 2010Q3

REPORT INFORMATION
  Report Type: 
  Country: None (occurrence: None)
  Receive Date: 20100722
  Receipt Date: 20080602
  Transmission Date: 20110219
  Serious: No
  Sender: FDA-Public Use
  Company Number: US-PFIZER INC-2008042654

PATIENT
  Sex: Female
  Weight: 47.7 kg

DRUGS (5)
  1. CHANTIX [Suspect]
     Indication: SMOKING CESSATION THERAPY
     Dates: start: 20080101
  2. PREMARIN [Suspect]
     Indication: MENOPAUSE
     Dates: start: 20080101
  3. ALL OTHER THERAPEUTIC PRODUCTS [Suspect]
     Dates: start: 20070701, end: 20080101
  4. ZOCOR [Concomitant]
  5. WELLBUTRIN [Concomitant]

REACTIONS (7)
  - ABNORMAL DREAMS [None]
  - FATIGUE [None]
  - FEELING ABNORMAL [None]
  - INSOMNIA [None]
  - IRRITABILITY [None]
  - LETHARGY [None]
  - MENOPAUSE [None]
